FAERS Safety Report 8327861-8 (Version None)
Quarter: 2012Q2

REPORT INFORMATION
  Report Type: 
  Country: None (occurrence: None)
  Receive Date: 20120502
  Receipt Date: 20120425
  Transmission Date: 20120825
  Serious: Yes (Other)
  Sender: FDA-Public Use
  Company Number: BR-SANOFI-AVENTIS-2011SA009495

PATIENT
  Sex: Female
  Weight: 70 kg

DRUGS (6)
  1. LANTUS [Suspect]
     Route: 058
     Dates: start: 20050101, end: 20110101
  2. LANTUS [Suspect]
     Route: 058
     Dates: start: 20110101
  3. LEVOTHYROXINE SODIUM [Suspect]
     Indication: HYPOTHYROIDISM
     Route: 048
     Dates: start: 20090101
  4. NOVORAPID [Concomitant]
     Dosage: ACCORDING TO GLYCEMIA
     Route: 058
  5. AUTOPEN 24 [Suspect]
     Indication: DEVICE THERAPY
     Dates: start: 20050101
  6. LEVOTHYROXINE SODIUM [Suspect]
     Route: 048
     Dates: start: 20090101

REACTIONS (5)
  - GESTATIONAL DIABETES [None]
  - HYPERGLYCAEMIA [None]
  - PREGNANCY [None]
  - NAUSEA [None]
  - MATERNAL EXPOSURE DURING PREGNANCY [None]
